FAERS Safety Report 7041103-5 (Version None)
Quarter: 2010Q4

REPORT INFORMATION
  Report Type: 
  Country: None (occurrence: None)
  Receive Date: 20101013
  Receipt Date: 20100930
  Transmission Date: 20110411
  Serious: Yes (Hospitalization)
  Sender: FDA-Public Use
  Company Number: JP-ELI_LILLY_AND_COMPANY-JP201009001985

PATIENT
  Sex: Female
  Weight: 83 kg

DRUGS (9)
  1. CYMBALTA [Suspect]
     Indication: DEPRESSION
     Dosage: 20 MG, DAILY (1/D)
     Route: 048
     Dates: start: 20100731, end: 20100806
  2. CYMBALTA [Suspect]
     Dosage: 20 MG, 2/D
     Route: 048
     Dates: start: 20100807, end: 20100813
  3. CYMBALTA [Suspect]
     Dosage: 20 MG, 3/D
     Route: 048
     Dates: start: 20100814, end: 20100903
  4. PAXIL [Concomitant]
     Indication: DEPRESSION
     Dosage: 20 MG, DAILY (1/D)
     Route: 048
     Dates: start: 20060601
  5. DEPAKENE [Concomitant]
     Dosage: 200 MG, 2/D
     Route: 048
     Dates: start: 20100709, end: 20100907
  6. SILECE [Concomitant]
     Dosage: 1 MG, DAILY (1/D)
     Route: 048
     Dates: start: 20060601
  7. MEILAX [Concomitant]
     Indication: ANXIETY
     Dosage: 1 MG, DAILY (1/D)
     Route: 048
     Dates: start: 20060601
  8. GLYSENNID [Concomitant]
     Dosage: 12 MG, 2/D
     Route: 048
     Dates: start: 20060601
  9. JUVELA N [Concomitant]
     Indication: VITAMIN SUPPLEMENTATION
     Dosage: 200 MG, 3/D
     Route: 048
     Dates: start: 20100720

REACTIONS (1)
  - LIVER DISORDER [None]
